FAERS Safety Report 7867588-X (Version None)
Quarter: 2011Q4

REPORT INFORMATION
  Report Type: 
  Country: None (occurrence: None)
  Receive Date: 20111028
  Receipt Date: 20111020
  Transmission Date: 20120403
  Serious: Yes (Other)
  Sender: FDA-Public Use
  Company Number: PHEH2010US03510

PATIENT
  Sex: Male

DRUGS (18)
  1. METOPROLOL TARTRATE [Concomitant]
  2. NOVOLOG [Concomitant]
  3. AVANDIA [Concomitant]
  4. AMITRIPTYLINE HCL [Concomitant]
  5. GLYBURIDE [Concomitant]
  6. OMEPRAZOLE [Concomitant]
  7. CHEMOTHERAPEUTICS [Concomitant]
  8. ZOMETA [Suspect]
  9. MECLIZINE [Concomitant]
  10. METFORMIN [Concomitant]
  11. NIASPAN [Concomitant]
  12. ACCURETIC [Concomitant]
  13. RADIATION THERAPY [Concomitant]
  14. PENICILLIN [Concomitant]
  15. MOTRIN [Concomitant]
  16. WARFARIN SODIUM [Concomitant]
  17. LANTUS [Concomitant]
  18. GEMFIBROZIL [Concomitant]

REACTIONS (16)
  - PALPITATIONS [None]
  - PARTNER STRESS [None]
  - NEOPLASM MALIGNANT [None]
  - OSTEONECROSIS OF JAW [None]
  - PAIN [None]
  - OVERDOSE [None]
  - ARTHRALGIA [None]
  - LYMPHOMA [None]
  - RADICULOPATHY [None]
  - NEUROPATHY PERIPHERAL [None]
  - INTERVERTEBRAL DISC DEGENERATION [None]
  - SLEEP APNOEA SYNDROME [None]
  - DEFORMITY [None]
  - ANAEMIA [None]
  - HEART RATE IRREGULAR [None]
  - INFECTION [None]
